FAERS Safety Report 9575700 (Version 1)
Quarter: 2013Q4

REPORT INFORMATION
  Report Type: Spontaneous
  Country: US (occurrence: US)
  Receive Date: 20131001
  Receipt Date: 20131001
  Transmission Date: 20140711
  Serious: No
  Sender: FDA-Public Use
  Company Number: US-AMGEN-USASP2013000010

PATIENT
  Age: 62 Year
  Sex: Female
  Weight: 131 kg

DRUGS (16)
  1. ENBREL [Suspect]
     Indication: PSORIATIC ARTHROPATHY
     Dosage: 50 MG, QWK
     Route: 058
  2. NASONEX [Concomitant]
     Dosage: 50 MUG, UNK
  3. PROAIR HFA [Concomitant]
     Indication: HYPERSENSITIVITY
     Dosage: UNK
  4. ALLERGY                            /00000402/ [Concomitant]
     Dosage: 4 MG, 4 HR
     Route: 048
  5. VIAGRA [Concomitant]
     Dosage: 100 MG, UNK
     Route: 048
  6. BUPROPION [Concomitant]
     Dosage: 100 MG, UNK
     Route: 048
  7. FLEXERIL                           /00428402/ [Concomitant]
     Dosage: 10 MG, UNK
     Route: 048
  8. NIASPAN ER [Concomitant]
     Dosage: 1000 UNK, UNK
     Route: 048
  9. MOBIC [Concomitant]
     Dosage: 15 MG, UNK
     Route: 048
  10. FOLIC ACID [Concomitant]
     Dosage: UNK
     Route: 048
  11. LOSARTAN HCT [Concomitant]
     Dosage: 100-12.5 UNK UNK
     Route: 048
  12. RAPAFLO [Concomitant]
     Dosage: 04 MG, UNK
     Route: 048
  13. AMBIEN [Concomitant]
     Dosage: 10 MG, UNK
     Route: 048
  14. AMLODIPINE [Concomitant]
     Dosage: 10 MG, UNK
  15. ADVAIR [Concomitant]
     Dosage: 100/50
  16. METHOTREXATE [Concomitant]
     Dosage: 2.5 MG, UNK
     Route: 048

REACTIONS (1)
  - Nausea [Unknown]
